FAERS Safety Report 5504918-8 (Version None)
Quarter: 2007Q4

REPORT INFORMATION
  Report Type: 
  Country: None (occurrence: None)
  Receive Date: 20071102
  Receipt Date: 20071025
  Transmission Date: 20080405
  Serious: Yes (Other)
  Sender: FDA-Public Use
  Company Number: PHBS2007JP18163

PATIENT

DRUGS (1)
  1. ZOMETA [Suspect]
     Route: 042

REACTIONS (2)
  - PYREXIA [None]
  - WHITE BLOOD CELL COUNT INCREASED [None]
